FAERS Safety Report 7065139-3 (Version None)
Quarter: 2010Q4

REPORT INFORMATION
  Report Type: 
  Country: None (occurrence: None)
  Receive Date: 20101027
  Receipt Date: 20101020
  Transmission Date: 20110411
  Serious: Yes (Other)
  Sender: FDA-Public Use
  Company Number: US-PFIZER INC-2010133619

PATIENT
  Sex: Male
  Weight: 113.38 kg

DRUGS (11)
  1. NEURONTIN [Suspect]
     Indication: PAIN
     Dosage: 800 MG, 2X/DAY
     Route: 048
     Dates: start: 20030101, end: 20040101
  2. NEURONTIN [Suspect]
     Dosage: 800 MG, 4X/DAY
     Dates: start: 20040101
  3. BACLOFEN [Suspect]
     Indication: PAIN
     Dosage: 10 MG, 3X/DAY
     Route: 048
     Dates: start: 20040101
  4. NORVASC [Concomitant]
     Indication: HYPERTENSION
     Dosage: 10 MG, 1X/DAY
     Route: 048
     Dates: start: 20000101
  5. TOPROL-XL [Concomitant]
     Indication: HYPERTENSION
     Dosage: 50 MG, 1X/DAY
     Route: 048
     Dates: start: 20000101
  6. ZESTRIL [Concomitant]
     Indication: HYPERTENSION
     Dosage: 40 MG, 1X/DAY
     Route: 048
     Dates: start: 20000101
  7. K-DUR [Concomitant]
     Dosage: 10 MG, 1X/DAY
     Route: 048
  8. TRAZODONE [Concomitant]
     Indication: SLEEP DISORDER
     Dosage: 35 MG, 1X/DAY
     Route: 048
     Dates: start: 20030101
  9. LASIX [Concomitant]
     Indication: DIURETIC THERAPY
     Dosage: 20 MG, UNK
  10. ZOLOFT [Concomitant]
     Indication: DEPRESSION
     Dosage: 50 MG, 1X/DAY
     Route: 048
  11. CRESTOR [Concomitant]
     Indication: BLOOD CHOLESTEROL INCREASED
     Dosage: 10 MG, 1X/DAY
     Route: 048

REACTIONS (5)
  - DIABETES MELLITUS [None]
  - DRUG EFFECT DECREASED [None]
  - INTERVERTEBRAL DISC OPERATION [None]
  - ROTATOR CUFF REPAIR [None]
  - SURGERY [None]
